FAERS Safety Report 9442412 (Version 1)
Quarter: 2013Q3

REPORT INFORMATION
  Report Type: Spontaneous
  Country: US (occurrence: US)
  Receive Date: 20130806
  Receipt Date: 20130806
  Transmission Date: 20140515
  Serious: No
  Sender: FDA-Public Use
  Company Number: US-GLAXOSMITHKLINE-A1022038A

PATIENT
  Age: 73 Year
  Sex: Female

DRUGS (2)
  1. ADVAIR [Suspect]
     Indication: ASTHMA
     Dosage: 1PUFF TWICE PER DAY
     Route: 055
     Dates: start: 201302
  2. BLOOD PRESSURE MEDICATION [Concomitant]

REACTIONS (2)
  - Oral discomfort [Not Recovered/Not Resolved]
  - Oral pruritus [Unknown]
